FAERS Safety Report 5484104-0 (Version None)
Quarter: 2007Q4

REPORT INFORMATION
  Report Type: 
  Country: None (occurrence: None)
  Receive Date: 20071012
  Receipt Date: 20071004
  Transmission Date: 20080405
  Serious: Yes (Life-Threatening, Other)
  Sender: FDA-Public Use
  Company Number: JP-SHR-JP-2007-029049

PATIENT
  Age: 59 Year
  Sex: Female
  Weight: 39.66 kg

DRUGS (5)
  1. MAGNEVIST [Suspect]
     Dosage: 7 ML, 1 DOSE
     Route: 042
     Dates: start: 20070806, end: 20070806
  2. URSO 250 [Concomitant]
     Dosage: 100 MG, 3X/DAY
     Route: 048
  3. GLYCYRON [Concomitant]
     Dosage: 1 TAB(S), 3X/DAY
     Route: 048
  4. MALFA [Concomitant]
     Dosage: 10 ML, 3X/DAY
     Route: 048
  5. SODIUM CHLORIDE [Concomitant]
     Dosage: 20 ML, 1 DOSE
     Route: 042
     Dates: start: 20070806, end: 20070806

REACTIONS (4)
  - CARDIO-RESPIRATORY ARREST [None]
  - CONVULSION [None]
  - HYPOXIC ENCEPHALOPATHY [None]
  - VENTRICULAR FIBRILLATION [None]
